FAERS Safety Report 5486353-4 (Version None)
Quarter: 2007Q4

REPORT INFORMATION
  Report Type: 
  Country: None (occurrence: None)
  Receive Date: 20071016
  Receipt Date: 20071001
  Transmission Date: 20080405
  Serious: Yes (Hospitalization)
  Sender: FDA-Public Use
  Company Number: DE-ELI_LILLY_AND_COMPANY-DE200710000383

PATIENT
  Sex: Female

DRUGS (1)
  1. CYMBALTA [Suspect]
     Indication: NEURITIS
     Dosage: UNK, UNKNOWN
     Route: 048

REACTIONS (3)
  - BEDRIDDEN [None]
  - TACHYCARDIA [None]
  - VOMITING [None]
